FAERS Safety Report 24379750 (Version 1)
Quarter: 2024Q3

REPORT INFORMATION
  Report Type: Spontaneous
  Country: US (occurrence: US)
  Receive Date: 20240930
  Receipt Date: 20240930
  Transmission Date: 20241016
  Serious: Yes (Hospitalization, Other)
  Sender: GLAXOSMITHKLINE
  Company Number: US-GSKCCFUS-Case-02110188_AE-116481

PATIENT

DRUGS (1)
  1. ALBUTEROL [Suspect]
     Active Substance: ALBUTEROL
     Indication: Product used for unknown indication
     Dosage: 90 MG

REACTIONS (6)
  - Cardiac failure [Unknown]
  - Brain fog [Not Recovered/Not Resolved]
  - Vaginal cyst [Unknown]
  - Cyst rupture [Unknown]
  - Spinal cord infection [Unknown]
  - Gait inability [Unknown]
